FAERS Safety Report 19064068 (Version 3)
Quarter: 2021Q2

REPORT INFORMATION
  Report Type: Spontaneous
  Country: US (occurrence: US)
  Receive Date: 20210326
  Receipt Date: 20210412
  Transmission Date: 20210717
  Serious: No
  Sender: FDA-Public Use
  Company Number: US-SA-2021SA090618

PATIENT
  Age: 68 Year
  Sex: Female

DRUGS (1)
  1. TOUJEO [Suspect]
     Active Substance: INSULIN GLARGINE
     Indication: TYPE 2 DIABETES MELLITUS
     Dosage: 75 IU, QD(NIGHT )
     Route: 065
     Dates: start: 201909

REACTIONS (3)
  - Device operational issue [Unknown]
  - Injection site pain [Unknown]
  - Injection site haemorrhage [Unknown]
